FAERS Safety Report 6051686-X (Version None)
Quarter: 2009Q1

REPORT INFORMATION
  Report Type: 
  Country: None (occurrence: None)
  Receive Date: 20090121
  Receipt Date: 20090121
  Transmission Date: 20090719
  Serious: Yes (Other)
  Sender: FDA-Public Use
  Company Number: None

PATIENT
  Age: 32 Year
  Sex: Female
  Weight: 61.2356 kg

DRUGS (2)
  1. SINGULAIR [Suspect]
     Indication: MILK ALLERGY
     Dosage: 10 MG DAILY PO
     Route: 048
     Dates: start: 20080501, end: 20081229
  2. SINGULAIR [Suspect]
     Indication: SEASONAL ALLERGY
     Dosage: 10 MG DAILY PO
     Route: 048
     Dates: start: 20080501, end: 20081229

REACTIONS (3)
  - AGITATION [None]
  - DEPRESSION [None]
  - IRRITABILITY [None]
